FAERS Safety Report 12890684 (Version 1)
Quarter: 2016Q4

REPORT INFORMATION
  Report Type: Spontaneous
  Country: US (occurrence: US)
  Receive Date: 20161027
  Receipt Date: 20161027
  Transmission Date: 20170207
  Serious: No
  Sender: FDA-Public Use
  Company Number: US-JAZZ-2016-US-015892

PATIENT
  Sex: Female

DRUGS (16)
  1. FLONASE [Concomitant]
     Active Substance: FLUTICASONE PROPIONATE
  2. LEXAPRO [Concomitant]
     Active Substance: ESCITALOPRAM OXALATE
  3. RITALIN [Concomitant]
     Active Substance: METHYLPHENIDATE HYDROCHLORIDE
  4. LORATADINE. [Concomitant]
     Active Substance: LORATADINE
  5. ZYRTEC [Concomitant]
     Active Substance: CETIRIZINE HYDROCHLORIDE
  6. ALAWAY [Concomitant]
     Active Substance: KETOTIFEN FUMARATE
  7. VITAMIN D [Concomitant]
     Active Substance: CHOLECALCIFEROL
  8. POTASSIUM CHLORIDE. [Concomitant]
     Active Substance: POTASSIUM CHLORIDE
  9. XYREM [Suspect]
     Active Substance: SODIUM OXYBATE
     Indication: CATAPLEXY
     Dosage: 3 G, BID
     Route: 048
     Dates: start: 200809, end: 200905
  10. AXERT [Concomitant]
     Active Substance: ALMOTRIPTAN MALATE
  11. VOLTAREN [Concomitant]
     Active Substance: DICLOFENAC SODIUM
  12. XYREM [Suspect]
     Active Substance: SODIUM OXYBATE
     Indication: NARCOLEPSY
     Dosage: 2.5 G, BID
     Route: 048
     Dates: start: 200806, end: 200809
  13. XYREM [Suspect]
     Active Substance: SODIUM OXYBATE
     Dosage: 3.5 G, BID
     Route: 048
     Dates: start: 200905
  14. NAPROXEN. [Concomitant]
     Active Substance: NAPROXEN
  15. PREMARIN [Concomitant]
     Active Substance: ESTROGENS, CONJUGATED
  16. TOPAMAX [Concomitant]
     Active Substance: TOPIRAMATE

REACTIONS (1)
  - Ingrowing nail [Unknown]
